FAERS Safety Report 6280486-0 (Version None)
Quarter: 2009Q3

REPORT INFORMATION
  Report Type: 
  Country: None (occurrence: None)
  Receive Date: 20090724
  Receipt Date: 20080715
  Transmission Date: 20100115
  Serious: No
  Sender: FDA-Public Use
  Company Number: A0738669A

PATIENT
  Sex: Female

DRUGS (2)
  1. AVANDIA [Suspect]
     Indication: DRUG USE FOR UNKNOWN INDICATION
     Route: 048
  2. NOVOLIN [Concomitant]

REACTIONS (2)
  - FLUID RETENTION [None]
  - WEIGHT INCREASED [None]
